FAERS Safety Report 19919570 (Version 1)
Quarter: 2021Q4

REPORT INFORMATION
  Report Type: Spontaneous
  Country: US (occurrence: US)
  Receive Date: 20211004
  Receipt Date: 20211004
  Transmission Date: 20220303
  Serious: No
  Sender: FDA-Public Use
  Company Number: US-NOVARTISTESTPH-NVSC2021US223131

PATIENT
  Sex: Female

DRUGS (2)
  1. ZORTRESS [Suspect]
     Active Substance: EVEROLIMUS
     Indication: Product used for unknown indication
     Dosage: 0.5 MG, BID (2 TABLET IN TO 2)
     Route: 065
  2. ZORTRESS [Suspect]
     Active Substance: EVEROLIMUS
     Dosage: 1 MG, BID (2 TABLET IN TO 2)
     Route: 065

REACTIONS (1)
  - Stomatitis [Not Recovered/Not Resolved]
